FAERS Safety Report 17597038 (Version 2)
Quarter: 2020Q2

REPORT INFORMATION
  Report Type: Spontaneous
  Country: US (occurrence: US)
  Receive Date: 20200330
  Receipt Date: 20200402
  Transmission Date: 20200713
  Serious: Yes (Hospitalization)
  Sender: FDA-Public Use
  Company Number: US-GLAXOSMITHKLINE-US2020054805

PATIENT
  Age: 30 Year
  Sex: Female

DRUGS (1)
  1. ABREVA [Suspect]
     Active Substance: DOCOSANOL
     Indication: ORAL HERPES
     Dosage: UNK
     Dates: start: 20200320, end: 20200322

REACTIONS (11)
  - Lip swelling [Unknown]
  - Discomfort [Unknown]
  - Photophobia [Unknown]
  - Mouth swelling [Unknown]
  - Oral herpes [Recovering/Resolving]
  - Eye swelling [Unknown]
  - Insomnia [Unknown]
  - Migraine [Unknown]
  - Wrong technique in product usage process [Unknown]
  - Hypersensitivity [Unknown]
  - Condition aggravated [Recovering/Resolving]

NARRATIVE: CASE EVENT DATE: 20200320
